FAERS Safety Report 5329012-0 (Version None)
Quarter: 2007Q2

REPORT INFORMATION
  Report Type: 
  Country: None (occurrence: None)
  Receive Date: 20070515
  Receipt Date: 20070502
  Transmission Date: 20071010
  Serious: Yes (Hospitalization)
  Sender: FDA-Public Use
  Company Number: MEDI-0005273(1)

PATIENT
  Age: 7 Month
  Sex: Male
  Weight: 7.9379 kg

DRUGS (5)
  1. SYNAGIS [Suspect]
     Indication: RESPIRATORY SYNCYTIAL VIRUS BRONCHIOLITIS
     Dosage: 1 IN 1 M, INTRAMUSCULAR
     Route: 030
     Dates: start: 20061107, end: 20070321
  2. VITAMIN CAP [Concomitant]
  3. ALBUTEROL [Concomitant]
  4. ORAPRED (PREDNISOLONE) [Concomitant]
  5. XOPENEX [Concomitant]

REACTIONS (6)
  - BLOOD GLUCOSE INCREASED [None]
  - HAEMOGLOBIN DECREASED [None]
  - PSYCHOMOTOR HYPERACTIVITY [None]
  - RESPIRATORY DISTRESS [None]
  - RESPIRATORY SYNCYTIAL VIRUS BRONCHIOLITIS [None]
  - THROMBOCYTOPENIA [None]
